FAERS Safety Report 20209051 (Version 3)
Quarter: 2021Q4

REPORT INFORMATION
  Report Type: Report from Study
  Country: CA (occurrence: CA)
  Receive Date: 20211220
  Receipt Date: 20211222
  Transmission Date: 20220303
  Serious: Yes (Other)
  Sender: FDA-Public Use
  Company Number: CA-BIOGEN-2021BI01071452

PATIENT
  Sex: Female

DRUGS (2)
  1. TYSABRI [Suspect]
     Active Substance: NATALIZUMAB
     Indication: Multiple sclerosis
     Route: 042
     Dates: start: 20210812
  2. BACTRIM DS [Concomitant]
     Active Substance: SULFAMETHOXAZOLE\TRIMETHOPRIM
     Indication: Product used for unknown indication
     Dosage: FOR 10 DAYS
     Route: 065
     Dates: start: 20211126

REACTIONS (15)
  - Skin laceration [Unknown]
  - Concussion [Unknown]
  - Loss of consciousness [Not Recovered/Not Resolved]
  - Fall [Recovered/Resolved]
  - Fear [Unknown]
  - Urinary incontinence [Not Recovered/Not Resolved]
  - Presyncope [Unknown]
  - Insomnia [Unknown]
  - Staphylococcal infection [Recovered/Resolved]
  - Malaise [Not Recovered/Not Resolved]
  - Drug monitoring procedure not performed [Unknown]
  - Dizziness [Not Recovered/Not Resolved]
  - Urinary tract infection [Not Recovered/Not Resolved]
  - Hypersensitivity [Unknown]
  - Syncope [Unknown]

NARRATIVE: CASE EVENT DATE: 20210101
